FAERS Safety Report 5562440-7 (Version None)
Quarter: 2007Q4

REPORT INFORMATION
  Report Type: 
  Country: None (occurrence: None)
  Receive Date: 20071215
  Receipt Date: 20070502
  Transmission Date: 20080405
  Serious: No
  Sender: FDA-Public Use
  Company Number: US-AMGEN-STX217936

PATIENT
  Sex: Female

DRUGS (9)
  1. ENBREL [Suspect]
     Indication: PSORIASIS
     Route: 058
     Dates: start: 20061201, end: 20070201
  2. ENBREL [Suspect]
     Indication: PSORIATIC ARTHROPATHY
  3. NORVASC [Concomitant]
  4. EVISTA [Concomitant]
  5. FLAX SEED OIL [Concomitant]
  6. MULTIVIT [Concomitant]
  7. IBUPROFEN [Concomitant]
  8. ULTRAVATE [Concomitant]
  9. DOVONEX [Concomitant]

REACTIONS (2)
  - ARTHRALGIA [None]
  - DERMATITIS CONTACT [None]
